FAERS Safety Report 14956103 (Version 1)
Quarter: 2018Q2

REPORT INFORMATION
  Report Type: Spontaneous
  Country: US (occurrence: US)
  Receive Date: 20180531
  Receipt Date: 20180531
  Transmission Date: 20180711
  Serious: No
  Sender: FDA-Public Use
  Company Number: US-NOVEN PHARMACEUTICALS, INC.-US2018000024

PATIENT

DRUGS (2)
  1. DAYTRANA [Suspect]
     Active Substance: METHYLPHENIDATE
     Dosage: 15 MG UNK, UNK
     Route: 062
     Dates: start: 20180101, end: 20180103
  2. DAYTRANA [Suspect]
     Active Substance: METHYLPHENIDATE
     Indication: ATTENTION DEFICIT/HYPERACTIVITY DISORDER
     Dosage: 15 MG, UNKNOWN
     Route: 062
     Dates: start: 201711, end: 201712

REACTIONS (11)
  - Drug dose omission [Recovered/Resolved]
  - Application site swelling [Not Recovered/Not Resolved]
  - Application site erythema [Not Recovered/Not Resolved]
  - Application site irritation [Not Recovered/Not Resolved]
  - Application site pain [Not Recovered/Not Resolved]
  - Therapy cessation [Not Recovered/Not Resolved]
  - Application site erosion [Not Recovered/Not Resolved]
  - Product quality issue [Unknown]
  - Product adhesion issue [Recovered/Resolved]
  - Product administered at inappropriate site [Recovered/Resolved]
  - Drug prescribing error [Recovered/Resolved]

NARRATIVE: CASE EVENT DATE: 201711
